FAERS Safety Report 8032665-X (Version None)
Quarter: 2012Q1

REPORT INFORMATION
  Report Type: 
  Country: None (occurrence: None)
  Receive Date: 20120110
  Receipt Date: 20111024
  Transmission Date: 20120608
  Serious: No
  Sender: FDA-Public Use
  Company Number: US-COVIDIEN/TYCO HEALTHCARE/MALLINCKRODT-T201102407

PATIENT
  Sex: Female

DRUGS (1)
  1. OPTIRAY 160 [Suspect]
     Dosage: UNK, SINGLE
     Route: 042
     Dates: start: 20110902, end: 20110902

REACTIONS (3)
  - PRURITUS [None]
  - RASH [None]
  - URTICARIA [None]
